FAERS Safety Report 26172003 (Version 1)
Quarter: 2025Q4

REPORT INFORMATION
  Report Type: Spontaneous
  Country: AU (occurrence: AU)
  Receive Date: 20251217
  Receipt Date: 20251217
  Transmission Date: 20260117
  Serious: Yes (Hospitalization, Other)
  Sender: AZURITY PHARMACEUTICALS
  Company Number: AU-AZURITY PHARMACEUTICALS, INC.-AZR202512-003789

PATIENT
  Age: 41 Year
  Sex: Female

DRUGS (2)
  1. VERAPAMIL HYDROCHLORIDE [Suspect]
     Active Substance: VERAPAMIL HYDROCHLORIDE
     Dosage: 10.8 GRAM (SLOW-RELEASE)
     Route: 065
  2. FLECAINIDE [Suspect]
     Active Substance: FLECAINIDE
     Indication: Product used for unknown indication
     Dosage: 2 GRAM
     Route: 065

REACTIONS (7)
  - Toxicity to various agents [Recovered/Resolved]
  - Cardiogenic shock [Recovered/Resolved]
  - Metabolic acidosis [Recovered/Resolved]
  - Acute kidney injury [Recovered/Resolved]
  - Distributive shock [Recovered/Resolved]
  - Atrioventricular block complete [Recovered/Resolved]
  - Intentional overdose [Recovered/Resolved]
